FAERS Safety Report 10970633 (Version 2)
Quarter: 2016Q1

REPORT INFORMATION
  Report Type: Spontaneous
  Country: DK (occurrence: DK)
  Receive Date: 20150331
  Receipt Date: 20160128
  Transmission Date: 20160525
  Serious: Yes (Other)
  Sender: FDA-Public Use
  Company Number: PHHY2015DK029427

PATIENT
  Age: 25 Year
  Sex: Female

DRUGS (2)
  1. MALONETTA [Suspect]
     Active Substance: ETHINYL ESTRADIOL\LEVONORGESTREL
     Indication: CONTRACEPTION
     Dosage: 1 DF, UNK
     Route: 048
     Dates: end: 201410
  2. MALONETTA [Suspect]
     Active Substance: ETHINYL ESTRADIOL\LEVONORGESTREL
     Dosage: STYRKE: 0,15 + 0,03 MG.
     Route: 048
     Dates: end: 201410

REACTIONS (4)
  - Asthenopia [Unknown]
  - Dyspnoea [Unknown]
  - Retinal vascular thrombosis [Recovered/Resolved]
  - Visual acuity reduced [Recovered/Resolved]

NARRATIVE: CASE EVENT DATE: 20141007
